FAERS Safety Report 5311271-1 (Version None)
Quarter: 2007Q2

REPORT INFORMATION
  Report Type: 
  Country: None (occurrence: None)
  Receive Date: 20070430
  Receipt Date: 20070418
  Transmission Date: 20071010
  Serious: Yes (Other)
  Sender: FDA-Public Use
  Company Number: PHHO2007JP06965

PATIENT
  Age: 64 Year
  Sex: Male

DRUGS (4)
  1. DIOVAN [Suspect]
     Indication: HYPERTENSION
     Dosage: 80 MG, QD
     Route: 048
     Dates: start: 20030815, end: 20050916
  2. ASPIRIN [Concomitant]
     Indication: TRANSIENT ISCHAEMIC ATTACK
     Dates: start: 20030225
  3. SELBEX [Concomitant]
     Dosage: UNK, UNK
     Dates: start: 20030225
  4. TICLOPIDINE HCL [Concomitant]
     Indication: TRANSIENT ISCHAEMIC ATTACK
     Dosage: UNK, UNK
     Dates: start: 20030225

REACTIONS (2)
  - CHEST PAIN [None]
  - CORONARY ARTERY STENOSIS [None]
